FAERS Safety Report 7445206-2 (Version None)
Quarter: 2011Q2

REPORT INFORMATION
  Report Type: 
  Country: None (occurrence: None)
  Receive Date: 20110429
  Receipt Date: 20110418
  Transmission Date: 20111010
  Serious: Yes (Hospitalization, Other)
  Sender: FDA-Public Use
  Company Number: US-JNJFOC-20110204902

PATIENT
  Sex: Male
  Weight: 106.6 kg

DRUGS (2)
  1. INVEGA [Suspect]
     Indication: HALLUCINATION
     Route: 048
  2. REMERON [Concomitant]
     Indication: DEPRESSION
     Route: 048

REACTIONS (2)
  - DYSPNOEA [None]
  - SWOLLEN TONGUE [None]
